FAERS Safety Report 19509670 (Version 1)
Quarter: 2021Q3

REPORT INFORMATION
  Report Type: Spontaneous
  Country: RU (occurrence: RU)
  Receive Date: 20210708
  Receipt Date: 20210708
  Transmission Date: 20211014
  Serious: Yes (Death, Other)
  Sender: FDA-Public Use
  Company Number: RU-ASTRAZENECA-2021A575970

PATIENT
  Age: 65 Year
  Sex: Female

DRUGS (3)
  1. OLAPARIB. [Suspect]
     Active Substance: OLAPARIB
     Indication: BREAST CANCER STAGE IV
     Route: 048
     Dates: start: 20170625, end: 2019
  2. OLAPARIB. [Suspect]
     Active Substance: OLAPARIB
     Indication: BREAST CANCER STAGE II
     Route: 048
     Dates: start: 20170625, end: 2019
  3. OLAPARIB. [Suspect]
     Active Substance: OLAPARIB
     Indication: OVARIAN CANCER STAGE III
     Route: 048
     Dates: start: 20170625, end: 2019

REACTIONS (3)
  - Oncologic complication [Unknown]
  - Fatigue [Unknown]
  - Pain [Unknown]

NARRATIVE: CASE EVENT DATE: 201903
